FAERS Safety Report 8207756-0 (Version None)
Quarter: 2012Q1

REPORT INFORMATION
  Report Type: 
  Country: None (occurrence: None)
  Receive Date: 20120314
  Receipt Date: 20120302
  Transmission Date: 20120608
  Serious: Yes (Other)
  Sender: FDA-Public Use
  Company Number: US-GILEAD-2012-0050953

PATIENT
  Sex: Male

DRUGS (23)
  1. BUPROPION HCL [Concomitant]
     Indication: SMOKING CESSATION THERAPY
     Dosage: 150 MG, QD
     Route: 048
     Dates: start: 20090101, end: 20090201
  2. TUMS                               /00108001/ [Concomitant]
     Indication: DYSPEPSIA
     Dosage: UNK, PRN
     Dates: start: 19940101
  3. SODIUM CHLORIDE [Concomitant]
     Dosage: 13 MEQ, BID
     Route: 048
     Dates: start: 20100915
  4. EMTRICITABINE AND TENOFOVIR DISOPROXIL FUMARATE [Suspect]
     Indication: PROPHYLAXIS AGAINST HIV INFECTION
     Dosage: UNK, QD
     Route: 048
     Dates: start: 20090109, end: 20091002
  5. IBUPROFEN [Concomitant]
     Indication: HEADACHE
     Dosage: 800 MG, PRN
     Route: 048
     Dates: start: 20090325, end: 20100401
  6. PHOSPHORUS [Concomitant]
     Indication: HYPOPHOSPHATAEMIA
     Dosage: 250 MG, BID
     Route: 048
     Dates: start: 20100503, end: 20100817
  7. POTASSIUM [Concomitant]
     Dosage: 1.1 MEQ, QD
     Route: 048
     Dates: start: 20100915
  8. DIPHENHYDRAMINE HCL [Concomitant]
     Indication: SEASONAL ALLERGY
     Dosage: 50 MG, PRN
     Route: 048
     Dates: start: 20030101
  9. ALKA-SELTZER                       /00002701/ [Concomitant]
     Indication: ABDOMINAL DISCOMFORT
     Dosage: UNK, PRN
     Route: 048
     Dates: start: 20090115, end: 20100701
  10. PHOSPHATE                          /01053101/ [Concomitant]
     Dosage: 8 MMOL, QD
     Route: 048
     Dates: start: 20100915
  11. NAPROXEN SODIUM [Concomitant]
     Indication: MUSCULOSKELETAL PAIN
     Dosage: UNK
  12. NYQUIL [Concomitant]
     Indication: VIRAL INFECTION
     Dosage: UNK, PRN
     Route: 048
     Dates: start: 20090117
  13. PHOSPHORUS [Concomitant]
     Dosage: 250 MG, QD
     Route: 048
     Dates: start: 20100915
  14. POTASSIUM [Concomitant]
     Indication: HYPOPHOSPHATAEMIA
     Dosage: 1.1 MEQ, BID
     Route: 048
     Dates: start: 20100503, end: 20100817
  15. EMTRICITABINE AND TENOFOVIR DISOPROXIL FUMARATE [Suspect]
     Dosage: UNK
     Dates: start: 20091105
  16. HYDROCORTISONE [Concomitant]
     Indication: DERMATITIS
     Dosage: UNK, PRN
     Route: 061
     Dates: start: 20070101
  17. ALBUTEROL [Concomitant]
     Indication: ASTHMA
     Dosage: UNK
     Dates: start: 19820101, end: 20100601
  18. NAPROXEN SODIUM [Concomitant]
     Indication: MIGRAINE
     Dosage: 880 MG, PRN
     Route: 048
     Dates: start: 19980101
  19. OMNARIS [Concomitant]
     Indication: HYPERSENSITIVITY
     Dosage: UNK, PRN
     Route: 045
     Dates: start: 20090501, end: 20100701
  20. SODIUM CHLORIDE [Concomitant]
     Indication: HYPOPHOSPHATAEMIA
     Dosage: 13 MEQ, BID
     Route: 048
     Dates: start: 20100503, end: 20100817
  21. EUCALYPTUS OIL [Concomitant]
     Indication: ANALGESIC THERAPY
     Dosage: UNK, PRN
     Route: 061
     Dates: start: 19860101
  22. THERAFLU                           /00446801/ [Concomitant]
     Indication: UPPER RESPIRATORY TRACT INFECTION
     Dosage: UNK UNK, PRN
     Route: 048
     Dates: start: 20091215, end: 20091219
  23. PHOSPHATE                          /01053101/ [Concomitant]
     Indication: HYPOPHOSPHATAEMIA
     Dosage: 8 MMOL, BID
     Route: 048
     Dates: start: 20100503, end: 20100817

REACTIONS (1)
  - HYPOPHOSPHATAEMIA [None]
